FAERS Safety Report 25807509 (Version 1)
Quarter: 2025Q3

REPORT INFORMATION
  Report Type: Spontaneous
  Country: US (occurrence: None)
  Receive Date: 20250916
  Receipt Date: 20250916
  Transmission Date: 20251020
  Serious: Yes (Other)
  Sender: FDA-CTU
  Company Number: None

PATIENT
  Sex: Male

DRUGS (1)
  1. HUMIRA [Suspect]
     Active Substance: ADALIMUMAB
     Indication: Crohn^s disease
     Dates: start: 20250225

REACTIONS (6)
  - Quality of life decreased [None]
  - Intestinal obstruction [None]
  - Therapy interrupted [None]
  - Infection [None]
  - Pyrexia [None]
  - Product use issue [None]
